FAERS Safety Report 19477656 (Version 1)
Quarter: 2021Q2

REPORT INFORMATION
  Report Type: Spontaneous
  Country: US (occurrence: US)
  Receive Date: 20210630
  Receipt Date: 20210630
  Transmission Date: 20210717
  Serious: No
  Sender: FDA-Public Use
  Company Number: None

PATIENT
  Age: 71 Year
  Sex: Male

DRUGS (1)
  1. MAVYRET [Suspect]
     Active Substance: GLECAPREVIR\PIBRENTASVIR
     Dosage: ?          OTHER DOSE:300?120 DF;?
     Route: 048
     Dates: start: 20210611

REACTIONS (4)
  - Drug interaction [None]
  - Incorrect dose administered [None]
  - Product dispensing error [None]
  - Product prescribing issue [None]
